FAERS Safety Report 15575077 (Version 1)
Quarter: 2018Q4

REPORT INFORMATION
  Report Type: Spontaneous
  Country: US (occurrence: US)
  Receive Date: 20181101
  Receipt Date: 20181101
  Transmission Date: 20190205
  Serious: Yes (Life-Threatening, Hospitalization, Disabling)
  Sender: FDA-Public Use
  Company Number: None

PATIENT
  Age: 20 Year
  Sex: Male
  Weight: 68.85 kg

DRUGS (7)
  1. FLUOXETINE [Suspect]
     Active Substance: FLUOXETINE HYDROCHLORIDE
     Indication: DEPRESSION
  2. VENLAFAXINE [Suspect]
     Active Substance: VENLAFAXINE HYDROCHLORIDE
  3. SERTALINE [Suspect]
     Active Substance: SERTRALINE HYDROCHLORIDE
  4. ESCITALOPRAM [Suspect]
     Active Substance: ESCITALOPRAM OXALATE
  5. FLUOXETINE [Suspect]
     Active Substance: FLUOXETINE HYDROCHLORIDE
     Indication: ANXIETY
  6. WELLBUTRIN [Concomitant]
     Active Substance: BUPROPION HYDROCHLORIDE
  7. ALPRAZOLAM. [Suspect]
     Active Substance: ALPRAZOLAM

REACTIONS (17)
  - Drug dependence [None]
  - Visual impairment [None]
  - Feeling hot [None]
  - Insomnia [None]
  - Fatigue [None]
  - Nicotine dependence [None]
  - Crying [None]
  - Speech disorder [None]
  - Therapy cessation [None]
  - Loss of libido [None]
  - Depressed mood [None]
  - Product complaint [None]
  - Feeling abnormal [None]
  - Depression [None]
  - Discomfort [None]
  - Fall [None]
  - Disturbance in attention [None]
